FAERS Safety Report 6590942-3 (Version None)
Quarter: 2010Q1

REPORT INFORMATION
  Report Type: 
  Country: None (occurrence: None)
  Receive Date: 20100219
  Receipt Date: 20100208
  Transmission Date: 20100710
  Serious: Yes (Other)
  Sender: FDA-Public Use
  Company Number: US-JNJFOC-20091105146

PATIENT
  Sex: Female
  Weight: 68.95 kg

DRUGS (6)
  1. REMICADE [Suspect]
     Indication: CROHN'S DISEASE
     Route: 042
  2. ORTHO TRI-CYCLEN [Concomitant]
  3. VITAMINS NOS [Concomitant]
  4. CANASA [Concomitant]
     Route: 054
  5. MESALAMINE [Concomitant]
     Route: 048
  6. HERBAL [Concomitant]

REACTIONS (4)
  - DRUG HYPERSENSITIVITY [None]
  - DYSPNOEA [None]
  - HYPOAESTHESIA FACIAL [None]
  - INFUSION RELATED REACTION [None]
